FAERS Safety Report 4742033-1 (Version None)
Quarter: 2005Q3

REPORT INFORMATION
  Report Type: 
  Country: None (occurrence: None)
  Receive Date: 20050727
  Receipt Date: 20041213
  Transmission Date: 20060218
  Serious: Yes (Hospitalization)
  Sender: FDA-Public Use
  Company Number: PAGL/04/12/LIT

PATIENT
  Age: 76 Year
  Sex: Male

DRUGS (1)
  1. PANGLOBULIN [Suspect]
     Indication: POLYNEUROPATHY
     Dosage: 0.5 G/KG B.W., O.A.D., I.V.
     Route: 042

REACTIONS (5)
  - ANOREXIA [None]
  - BLOOD CREATININE INCREASED [None]
  - FATIGUE [None]
  - RENAL FAILURE ACUTE [None]
  - URINE OUTPUT DECREASED [None]
